FAERS Safety Report 13967600 (Version 4)
Quarter: 2017Q4

REPORT INFORMATION
  Report Type: Spontaneous
  Country: US (occurrence: US)
  Receive Date: 20170914
  Receipt Date: 20171121
  Transmission Date: 20180320
  Serious: Yes (Life-Threatening, Hospitalization, Other)
  Sender: FDA-Public Use
  Company Number: US-UNITED THERAPEUTICS-UNT-2017-013139

PATIENT
  Age: 75 Year
  Sex: Female
  Weight: 53.97 kg

DRUGS (5)
  1. LETAIRIS [Suspect]
     Active Substance: AMBRISENTAN
     Indication: PULMONARY HYPERTENSION
     Dosage: 10 MG, QD
     Route: 065
  2. REMODULIN [Suspect]
     Active Substance: TREPROSTINIL
     Indication: PULMONARY HYPERTENSION
     Dosage: 0.03 ?G/KG, CONTINUING, Q1 SECOND
     Route: 041
     Dates: start: 20160426, end: 2017
  3. REMODULIN [Suspect]
     Active Substance: TREPROSTINIL
     Dosage: 30 NG, EVERY 1 SECOND
     Route: 041
  4. ADEMPAS [Concomitant]
     Active Substance: RIOCIGUAT
     Indication: PRODUCT USED FOR UNKNOWN INDICATION
     Dosage: 1 MG, TID
     Route: 065
  5. LETAIRIS [Suspect]
     Active Substance: AMBRISENTAN
     Indication: SCLERODERMA

REACTIONS (3)
  - Mitral valve incompetence [Recovered/Resolved]
  - Endocarditis [Recovered/Resolved]
  - Device related sepsis [Recovered/Resolved]

NARRATIVE: CASE EVENT DATE: 20170805
